FAERS Safety Report 13651936 (Version 3)
Quarter: 2017Q3

REPORT INFORMATION
  Report Type: Spontaneous
  Country: US (occurrence: US)
  Receive Date: 20170614
  Receipt Date: 20170704
  Transmission Date: 20171127
  Serious: Yes (Other)
  Sender: FDA-Public Use
  Company Number: US-AMGEN-USASP2017083812

PATIENT
  Age: 36 Year
  Sex: Female

DRUGS (2)
  1. BLINCYTO [Suspect]
     Active Substance: BLINATUMOMAB
     Indication: ACUTE LYMPHOCYTIC LEUKAEMIA RECURRENT
     Dosage: 9 MCG, QD
     Route: 042
     Dates: start: 20170529
  2. BLINCYTO [Suspect]
     Active Substance: BLINATUMOMAB
     Dosage: 28 MUG, QD
     Route: 042

REACTIONS (6)
  - White blood cell count increased [Unknown]
  - Liver function test increased [Unknown]
  - Pyrexia [Unknown]
  - Pain [Recovered/Resolved]
  - Neurotoxicity [Unknown]
  - Blast cell count increased [Recovered/Resolved]

NARRATIVE: CASE EVENT DATE: 2017
